FAERS Safety Report 7435228-X (Version None)
Quarter: 2011Q2

REPORT INFORMATION
  Report Type: 
  Country: None (occurrence: None)
  Receive Date: 20110415
  Receipt Date: 20110406
  Transmission Date: 20111010
  Serious: Yes (Other)
  Sender: FDA-Public Use
  Company Number: 2011SP015597

PATIENT
  Age: 38 Year
  Sex: Female

DRUGS (6)
  1. LOPINAVIR [Concomitant]
  2. DESOGEN [Suspect]
     Indication: MENORRHAGIA
     Dosage: 7 5 MCG;QD
     Dates: start: 20100201, end: 20100501
  3. DESOGEN [Suspect]
     Indication: METRORRHAGIA
     Dosage: 7 5 MCG;QD
     Dates: start: 20100201, end: 20100501
  4. TENOFOVIR DISOPROXIL FUMARATE [Concomitant]
  5. RITONAVIR [Suspect]
     Indication: ANTIRETROVIRAL THERAPY
  6. EMTRICITABINE [Concomitant]

REACTIONS (6)
  - VIROLOGIC FAILURE [None]
  - IMMUNE SYSTEM DISORDER [None]
  - CD4 LYMPHOCYTES DECREASED [None]
  - HAEMOGLOBIN DECREASED [None]
  - DRUG INTERACTION [None]
  - BLOOD HIV RNA INCREASED [None]
